FAERS Safety Report 5832359-2 (Version None)
Quarter: 2008Q3

REPORT INFORMATION
  Report Type: 
  Country: None (occurrence: None)
  Receive Date: 20080804
  Receipt Date: 20080725
  Transmission Date: 20090109
  Serious: Yes (Other)
  Sender: FDA-Public Use
  Company Number: US-AVENTIS-200718351US

PATIENT
  Sex: Female
  Weight: 100 kg

DRUGS (11)
  1. KETEK [Suspect]
     Dates: start: 20060202, end: 20060211
  2. ANTIBIOTICS [Concomitant]
     Dosage: DOSE: UNK
  3. PREDNISOLONE [Concomitant]
     Dosage: DOSE: UNK
  4. ORTHO TRI-CYCLEN [Concomitant]
     Dosage: DOSE: UNK
  5. CENTRUM                            /00554501/ [Concomitant]
     Dosage: DOSE: UNK
  6. ACTIGALL [Concomitant]
  7. ZYRTEC [Concomitant]
     Dosage: DOSE: UNK
  8. SUDAFED 12 HOUR [Concomitant]
     Dosage: DOSE: UNK
  9. ALLEGRA-D 12 HOUR [Concomitant]
     Dosage: DOSE: UNK
     Dates: end: 20070501
  10. SINGULAIR [Concomitant]
     Dosage: DOSE: UNK
  11. BENADRYL [Concomitant]
     Dosage: DOSE: UNK

REACTIONS (14)
  - ALANINE AMINOTRANSFERASE INCREASED [None]
  - ANOREXIA [None]
  - ASPARTATE AMINOTRANSFERASE INCREASED [None]
  - BLOOD BILIRUBIN INCREASED [None]
  - CHILLS [None]
  - CHOLESTASIS [None]
  - CHROMATURIA [None]
  - FATIGUE [None]
  - GALLBLADDER OEDEMA [None]
  - HEPATITIS [None]
  - JAUNDICE [None]
  - NAUSEA [None]
  - PRURITUS [None]
  - THIRST [None]
